FAERS Safety Report 19438179 (Version 5)
Quarter: 2022Q4

REPORT INFORMATION
  Report Type: Report from Study
  Country: DE (occurrence: DE)
  Receive Date: 20210619
  Receipt Date: 20221123
  Transmission Date: 20230113
  Serious: Yes (Other)
  Sender: FDA-Public Use
  Company Number: DE-AMGEN-DEUCT2021063038

PATIENT
  Age: 60 Year
  Sex: Female
  Weight: 84 kg

DRUGS (10)
  1. SOTORASIB [Suspect]
     Active Substance: SOTORASIB
     Indication: Non-small cell lung cancer stage IV
     Dosage: 960 MILLIGRAM
     Route: 048
     Dates: start: 20210329
  2. SOTORASIB [Suspect]
     Active Substance: SOTORASIB
     Indication: K-ras gene mutation
     Dosage: 480 MILLIGRAM
     Route: 048
     Dates: start: 20210501
  3. PEMBROLIZUMAB [Suspect]
     Active Substance: PEMBROLIZUMAB
     Indication: K-ras gene mutation
     Dosage: UNK
     Route: 065
  4. PEMBROLIZUMAB [Suspect]
     Active Substance: PEMBROLIZUMAB
     Indication: Non-small cell lung cancer stage IV
  5. ESOMEPRAZOLE [Concomitant]
     Active Substance: ESOMEPRAZOLE
     Dosage: 40 MILLIGRAM
     Route: 048
     Dates: start: 202012, end: 20210810
  6. FLUCONAZOLE [Concomitant]
     Active Substance: FLUCONAZOLE
     Dosage: 0.1 MILLIGRAM
     Route: 048
     Dates: start: 202012, end: 20210810
  7. METAMIZOLE [Concomitant]
     Active Substance: METAMIZOLE
     Dosage: 30 DROP
     Route: 048
     Dates: start: 20210210, end: 20210810
  8. SODIUM PICOSULFATE [Concomitant]
     Active Substance: SODIUM PICOSULFATE
     Dosage: 20 GTT DROPS
     Route: 048
     Dates: start: 202012, end: 20210810
  9. CHOLECALCIFEROL [Concomitant]
     Active Substance: CHOLECALCIFEROL
     Dosage: 20000 UNK
     Route: 048
     Dates: start: 202012, end: 20210810
  10. IRBESARTAN [Concomitant]
     Active Substance: IRBESARTAN
     Dosage: 75 MILLIGRAM
     Route: 048
     Dates: start: 201712, end: 20210810

REACTIONS (2)
  - Hepatic failure [Recovered/Resolved]
  - Hepatic failure [Recovered/Resolved]

NARRATIVE: CASE EVENT DATE: 20210412
